FAERS Safety Report 10981884 (Version 2)
Quarter: 2015Q2

REPORT INFORMATION
  Report Type: Spontaneous
  Country: TR (occurrence: TR)
  Receive Date: 20150402
  Receipt Date: 20150413
  Transmission Date: 20150821
  Serious: Yes (Hospitalization)
  Sender: FDA-Public Use
  Company Number: PHHY2015TR038259

PATIENT
  Age: 64 Year

DRUGS (4)
  1. ZOLEDRONATE [Suspect]
     Active Substance: ZOLEDRONIC ACID
     Indication: PROSTATE CANCER METASTATIC
     Route: 065
  2. ZOLEDRONATE [Suspect]
     Active Substance: ZOLEDRONIC ACID
     Indication: METASTASES TO BONE
  3. BICALUTAMIDE. [Concomitant]
     Active Substance: BICALUTAMIDE
     Indication: PROSTATE CANCER METASTATIC
     Dosage: 50 MG, QD
     Route: 065
  4. LEUPROLIDE ACETATE. [Concomitant]
     Active Substance: LEUPROLIDE ACETATE
     Indication: PROSTATE CANCER METASTATIC
     Dosage: 22.5 MG, Q3MO
     Route: 065

REACTIONS (6)
  - Gingival swelling [Recovering/Resolving]
  - Abscess [Recovering/Resolving]
  - Pain in jaw [Recovering/Resolving]
  - Mastication disorder [Recovering/Resolving]
  - Osteonecrosis of jaw [Recovering/Resolving]
  - Stomatitis [Recovering/Resolving]
